FAERS Safety Report 20784681 (Version 1)
Quarter: 2022Q2

REPORT INFORMATION
  Report Type: Spontaneous
  Country: US (occurrence: US)
  Receive Date: 20220504
  Receipt Date: 20220504
  Transmission Date: 20220721
  Serious: No
  Sender: FDA-Public Use
  Company Number: US-PFIZER INC-202200469175

PATIENT
  Age: 17 Year
  Sex: Male

DRUGS (2)
  1. EUCRISA [Suspect]
     Active Substance: CRISABOROLE
     Indication: Dermatitis atopic
     Dosage: GOAL DOSE 18, 450MG
  2. EUCRISA [Suspect]
     Active Substance: CRISABOROLE
     Dosage: 2X/DAY

REACTIONS (1)
  - Application site burn [Unknown]
